FAERS Safety Report 4523336-2 (Version None)
Quarter: 2004Q4

REPORT INFORMATION
  Report Type: 
  Country: None (occurrence: None)
  Receive Date: 20041209
  Receipt Date: 20041129
  Transmission Date: 20050328
  Serious: Yes (Death)
  Sender: FDA-Public Use
  Company Number: SUSI-2004-00800

PATIENT
  Age: 5 Year
  Sex: Female

DRUGS (1)
  1. CARBAMAZEPINE [Suspect]
     Indication: CONVULSION

REACTIONS (10)
  - AREFLEXIA [None]
  - BRAIN DEATH [None]
  - CARDIAC OUTPUT DECREASED [None]
  - CARDIO-RESPIRATORY ARREST [None]
  - COMA [None]
  - HYPOTENSION [None]
  - NERVOUS SYSTEM DISORDER [None]
  - PUPIL FIXED [None]
  - UNRESPONSIVE TO PAIN STIMULI [None]
  - UNRESPONSIVE TO VERBAL STIMULI [None]
